FAERS Safety Report 5512776-0 (Version None)
Quarter: 2007Q4

REPORT INFORMATION
  Report Type: 
  Country: None (occurrence: None)
  Receive Date: 20071112
  Receipt Date: 20071107
  Transmission Date: 20080405
  Serious: Yes (Life-Threatening, Other)
  Sender: FDA-Public Use
  Company Number: PHBS2007BR17821

PATIENT
  Age: 42 Year
  Sex: Male
  Weight: 65 kg

DRUGS (3)
  1. RECLAST [Suspect]
     Indication: OSTEOPOROSIS
     Dosage: UNK, UNK
     Route: 042
     Dates: start: 20071024
  2. METICORTEN [Concomitant]
     Indication: MENIERE'S DISEASE
     Dosage: UNK, QD
     Route: 048
     Dates: start: 20010101
  3. BETASERC [Concomitant]
     Indication: MENIERE'S DISEASE
     Dosage: 12 MG, BID
     Route: 048
     Dates: start: 20010101

REACTIONS (19)
  - ARTHRALGIA [None]
  - BACK PAIN [None]
  - BONE PAIN [None]
  - CHILLS [None]
  - DELIRIUM [None]
  - DIZZINESS [None]
  - EYELID FUNCTION DISORDER [None]
  - FEELING ABNORMAL [None]
  - HEADACHE [None]
  - INFLUENZA [None]
  - LABYRINTHITIS [None]
  - NAUSEA [None]
  - OCULAR HYPERAEMIA [None]
  - PRURITUS GENERALISED [None]
  - PYREXIA [None]
  - SKIN EXFOLIATION [None]
  - TREMOR [None]
  - VERTIGO [None]
  - VOMITING [None]
